FAERS Safety Report 12062313 (Version 1)
Quarter: 2016Q1

REPORT INFORMATION
  Report Type: Report from Study
  Country: FR (occurrence: FR)
  Receive Date: 20160210
  Receipt Date: 20160210
  Transmission Date: 20160526
  Serious: Yes (Other)
  Sender: FDA-Public Use
  Company Number: FR-VIIV HEALTHCARE LIMITED-FR2016GSK016070

PATIENT
  Age: 48 Year
  Sex: Male

DRUGS (2)
  1. LAMIVUDINE AND ZIDOVUDINE [Suspect]
     Active Substance: LAMIVUDINE\ZIDOVUDINE
     Indication: HIV INFECTION
  2. EFAVIRENZ [Concomitant]
     Active Substance: EFAVIRENZ

REACTIONS (1)
  - Mitochondrial toxicity [Unknown]
